FAERS Safety Report 8875986 (Version 1)
Quarter: 2012Q4

REPORT INFORMATION
  Report Type: 
  Country: US (occurrence: US)
  Receive Date: 20121030
  Receipt Date: 20121030
  Transmission Date: 20130627
  Serious: Yes (Other)
  Sender: FDA-Public Use
  Company Number: US-UCBSA-069009

PATIENT
  Sex: Female

DRUGS (2)
  1. KEPPRA XR [Suspect]
     Indication: CONVULSION
     Dosage: DRUG STRENGTH: 500 MG
  2. DEPO VERA [Concomitant]

REACTIONS (4)
  - Drug withdrawal convulsions [Not Recovered/Not Resolved]
  - Convulsion [Unknown]
  - Insomnia [Unknown]
  - Inappropriate schedule of drug administration [Unknown]
